FAERS Safety Report 6915228-6 (Version None)
Quarter: 2010Q3

REPORT INFORMATION
  Report Type: 
  Country: None (occurrence: None)
  Receive Date: 20100804
  Receipt Date: 20100804
  Transmission Date: 20110219
  Serious: No
  Sender: FDA-Public Use
  Company Number: None

PATIENT
  Sex: Female
  Weight: 63.05 kg

DRUGS (2)
  1. ESTROGEN METHYTESTOSTERONE 0.625/1.25 MG TAB AMNEAL [Suspect]
     Indication: FEELING HOT
     Dosage: ONE 0.625/1.25 TABLET DAILY ENDOTRACHEAL
     Route: 007
     Dates: start: 20100601, end: 20100803
  2. ESTROGEN METHYTESTOSTERONE 0.625/1.25 MG TAB AMNEAL [Suspect]
     Indication: MENOPAUSAL SYMPTOMS
     Dosage: ONE 0.625/1.25 TABLET DAILY ENDOTRACHEAL
     Route: 007
     Dates: start: 20100601, end: 20100803

REACTIONS (4)
  - DRUG INEFFECTIVE [None]
  - NIGHT SWEATS [None]
  - PRODUCT QUALITY ISSUE [None]
  - PRODUCT SUBSTITUTION ISSUE [None]
